FAERS Safety Report 4615424-7 (Version None)
Quarter: 2005Q1

REPORT INFORMATION
  Report Type: 
  Country: None (occurrence: None)
  Receive Date: 20050317
  Receipt Date: 20050302
  Transmission Date: 20050727
  Serious: Yes (Death)
  Sender: FDA-Public Use
  Company Number: 2002133383US

PATIENT
  Age: 38 Year

DRUGS (3)
  1. CALAN [Suspect]
     Indication: ILL-DEFINED DISORDER
     Dosage: ORAL
     Route: 048
  2. THEOPHYLLINE [Suspect]
     Indication: ILL-DEFINED DISORDER
  3. METFORMIN HCL [Suspect]
     Indication: ILL-DEFINED DISORDER

REACTIONS (2)
  - COMPLETED SUICIDE [None]
  - MULTIPLE DRUG OVERDOSE [None]
